FAERS Safety Report 5959226-8 (Version None)
Quarter: 2008Q4

REPORT INFORMATION
  Report Type: 
  Country: None (occurrence: None)
  Receive Date: 20081120
  Receipt Date: 20080902
  Transmission Date: 20090506
  Serious: No
  Sender: FDA-Public Use
  Company Number: A0745412A

PATIENT
  Age: 29 Year
  Sex: Female

DRUGS (3)
  1. WELLBUTRIN SR [Suspect]
     Indication: DRUG USE FOR UNKNOWN INDICATION
     Dosage: 150MG TWICE PER DAY
     Route: 048
  2. ADDERALL 10 [Concomitant]
  3. BIRTH CONTROL [Concomitant]

REACTIONS (2)
  - DRUG INEFFECTIVE [None]
  - PRODUCT QUALITY ISSUE [None]
